FAERS Safety Report 9818242 (Version 1)
Quarter: 2014Q1

REPORT INFORMATION
  Report Type: Spontaneous
  Country: FR (occurrence: FR)
  Receive Date: 20140115
  Receipt Date: 20140115
  Transmission Date: 20141002
  Serious: Yes (Other)
  Sender: FDA-Public Use
  Company Number: FR-ASTRAZENECA-2014SE02436

PATIENT
  Age: 2664 Week
  Sex: Female

DRUGS (3)
  1. DIPRIVAN [Suspect]
     Indication: ANAESTHESIA
     Dosage: ONCE
     Route: 040
     Dates: start: 20130516, end: 20130516
  2. REMIFENTANIL [Suspect]
     Indication: ANAESTHESIA
     Dosage: ONCE
     Route: 040
     Dates: start: 20130516, end: 20130516
  3. CELOCURINE [Suspect]
     Indication: ANAESTHESIA
     Dosage: ONCE
     Route: 040
     Dates: start: 20130516, end: 20130516

REACTIONS (5)
  - Tachycardia [Recovered/Resolved]
  - Anaphylactic shock [Recovered/Resolved]
  - Rash [Recovered/Resolved]
  - Hypotension [Recovered/Resolved]
  - Bronchospasm [Recovered/Resolved]
